FAERS Safety Report 13991692 (Version 2)
Quarter: 2017Q4

REPORT INFORMATION
  Report Type: Spontaneous
  Country: US (occurrence: US)
  Receive Date: 20170920
  Receipt Date: 20171123
  Transmission Date: 20180321
  Serious: Yes (Other)
  Sender: FDA-Public Use
  Company Number: US-JNJFOC-20170722805

PATIENT
  Age: 64 Year
  Sex: Female
  Weight: 99.34 kg

DRUGS (3)
  1. RISPERDAL CONSTA [Suspect]
     Active Substance: RISPERIDONE
     Indication: SCHIZOPHRENIA
     Route: 030
     Dates: start: 20151201
  2. ZOLOFT [Concomitant]
     Active Substance: SERTRALINE HYDROCHLORIDE
     Indication: DEPRESSION
     Route: 065
     Dates: start: 201610
  3. BENZTROPINE [Concomitant]
     Active Substance: BENZTROPINE
     Indication: ADVERSE DRUG REACTION
     Route: 065
     Dates: start: 201511

REACTIONS (4)
  - Schizophrenia [Unknown]
  - Drug dose omission [Unknown]
  - Device leakage [Unknown]
  - Needle issue [Unknown]

NARRATIVE: CASE EVENT DATE: 20170727
